FAERS Safety Report 25728084 (Version 1)
Quarter: 2025Q3

REPORT INFORMATION
  Report Type: Spontaneous
  Country: CA (occurrence: CA)
  Receive Date: 20250826
  Receipt Date: 20250826
  Transmission Date: 20251020
  Serious: Yes (Other)
  Sender: MYLAN
  Company Number: CA-MYLANLABS-2025M1072628

PATIENT
  Age: 28 Year
  Sex: Female

DRUGS (5)
  1. GABAPENTIN [Suspect]
     Active Substance: GABAPENTIN
     Indication: Drug use disorder
     Dosage: 100 MILLIGRAM, BID (1 EVERY 0.5 DAYS)
  2. GABAPENTIN [Suspect]
     Active Substance: GABAPENTIN
  3. GABAPENTIN [Suspect]
     Active Substance: GABAPENTIN
  4. KETAMINE [Suspect]
     Active Substance: KETAMINE
     Indication: Schizoaffective disorder
     Dosage: 0.1 GRAM, QD (1 EVERY 1 DAYS)
  5. KETAMINE [Suspect]
     Active Substance: KETAMINE

REACTIONS (2)
  - Product ineffective [Unknown]
  - Intentional product misuse [Unknown]
